FAERS Safety Report 5143797-8 (Version None)
Quarter: 2006Q4

REPORT INFORMATION
  Report Type: 
  Country: None (occurrence: None)
  Receive Date: 20061106
  Receipt Date: 20061023
  Transmission Date: 20070319
  Serious: Yes (Other)
  Sender: FDA-Public Use
  Company Number: PHBS2006US16515

PATIENT
  Age: 44 Year
  Sex: Male

DRUGS (12)
  1. TEMAZEPAM (NGX) [Suspect]
     Indication: DEPRESSION
  2. INTERFERON ALFA [Suspect]
     Indication: HEPATITIS C
  3. CLONAZEPAM [Concomitant]
     Indication: DEPRESSION
  4. HYDROXYZINE [Concomitant]
     Indication: DEPRESSION
  5. RISPERIDONE [Concomitant]
     Indication: DEPRESSION
  6. TRIHEXYPHENIDYL HCL [Concomitant]
     Indication: DEPRESSION
  7. NPH INSULIN [Concomitant]
     Indication: DIABETES MELLITUS
  8. METFORMIN HCL [Concomitant]
     Indication: DIABETES MELLITUS
  9. ROSIGLITAZONE [Concomitant]
     Indication: DIABETES MELLITUS
  10. GLIMEPIRIDE [Concomitant]
     Indication: DIABETES MELLITUS
  11. FENOFIBRATE [Concomitant]
     Indication: BLOOD CHOLESTEROL INCREASED
  12. VALSARTAN [Suspect]

REACTIONS (4)
  - EYE PRURITUS [None]
  - RETINOPATHY [None]
  - SEASONAL ALLERGY [None]
  - VISUAL DISTURBANCE [None]
